FAERS Safety Report 5426097-8 (Version None)
Quarter: 2007Q3

REPORT INFORMATION
  Report Type: 
  Country: None (occurrence: None)
  Receive Date: 20070823
  Receipt Date: 20070823
  Transmission Date: 20080115
  Serious: Yes (Hospitalization)
  Sender: FDA-Public Use
  Company Number: None

PATIENT
  Age: 34 Year
  Sex: Female

DRUGS (2)
  1. METHIMAZOLE [Suspect]
  2. PROPRANOLOL [Suspect]

REACTIONS (4)
  - CHOLESTASIS [None]
  - HYPOTHYROIDISM [None]
  - LICHENOID KERATOSIS [None]
  - THYROTOXIC CRISIS [None]
